FAERS Safety Report 4567764-8 (Version None)
Quarter: 2005Q1

REPORT INFORMATION
  Report Type: 
  Country: None (occurrence: None)
  Receive Date: 20050127
  Receipt Date: 20050114
  Transmission Date: 20050727
  Serious: Yes (Death)
  Sender: FDA-Public Use
  Company Number: 2005013398

PATIENT
  Age: 15 Year
  Sex: Male

DRUGS (2)
  1. PHENYTOIN [Suspect]
     Indication: CONVULSION
     Dosage: INTRAVENOUS
     Route: 042
  2. DIAZEPAM [Suspect]
     Indication: CONVULSION
     Dosage: INTRAVENOUS
     Route: 042

REACTIONS (4)
  - CONDITION AGGRAVATED [None]
  - CONVULSION [None]
  - GENERAL PHYSICAL HEALTH DETERIORATION [None]
  - TACHYCARDIA [None]
